FAERS Safety Report 10153420 (Version 1)
Quarter: 2014Q2

REPORT INFORMATION
  Report Type: Spontaneous
  Country: PL (occurrence: PL)
  Receive Date: 20140505
  Receipt Date: 20140505
  Transmission Date: 20141212
  Serious: Yes (Hospitalization)
  Sender: FDA-Public Use
  Company Number: PHHY2014PL051821

PATIENT
  Age: 81 Year
  Sex: Female

DRUGS (5)
  1. TULIP [Suspect]
     Indication: BLOOD CHOLESTEROL INCREASED
     Dosage: 20 MG, QD
     Route: 048
     Dates: start: 201403, end: 20140424
  2. CONCOR [Concomitant]
     Dosage: UNK UKN, UNK
     Route: 048
  3. ADAVIN [Concomitant]
     Dosage: UNK UKN, UNK
     Route: 048
  4. DIURED [Concomitant]
     Dosage: UNK UKN, UNK
     Route: 048
     Dates: start: 20140415
  5. AREPLEX [Concomitant]
     Dosage: UNK UKN, UNK
     Route: 048
     Dates: start: 20140415

REACTIONS (5)
  - Myocardial infarction [Recovered/Resolved]
  - Wheezing [Recovered/Resolved]
  - Insomnia [Recovered/Resolved]
  - Asthenia [Recovered/Resolved]
  - Dyspnoea [Recovered/Resolved]
